FAERS Safety Report 24694295 (Version 1)
Quarter: 2024Q4

REPORT INFORMATION
  Report Type: Spontaneous
  Country: US (occurrence: US)
  Receive Date: 20241204
  Receipt Date: 20241204
  Transmission Date: 20250114
  Serious: No
  Sender: AUROBINDO
  Company Number: US-AUROBINDO-AUR-APL-2024-004533

PATIENT
  Age: 86 Year
  Sex: Male
  Weight: 64.4 kg

DRUGS (1)
  1. GUAIFENESIN [Suspect]
     Active Substance: GUAIFENESIN
     Indication: Cough
     Dosage: UNK (UNKNOWN DATE, 2 WEEKS AGO)
     Route: 065

REACTIONS (2)
  - Cough [Not Recovered/Not Resolved]
  - Drug ineffective [Unknown]
